FAERS Safety Report 15833934 (Version 7)
Quarter: 2020Q1

REPORT INFORMATION
  Report Type: Spontaneous
  Country: MM (occurrence: MM)
  Receive Date: 20190116
  Receipt Date: 20200129
  Transmission Date: 20200409
  Serious: Yes (Disabling, Other)
  Sender: FDA-Public Use
  Company Number: MM-JNJFOC-20190112258

PATIENT
  Age: 20 Year
  Sex: Male
  Weight: 37 kg

DRUGS (21)
  1. DELAMANID [Suspect]
     Active Substance: DELAMANID
     Indication: TUBERCULOSIS
     Route: 048
     Dates: start: 20181121
  2. LINEZOLID. [Suspect]
     Active Substance: LINEZOLID
     Indication: TUBERCULOSIS
     Route: 048
     Dates: start: 20180517, end: 2018
  3. CLOFAZIMINE [Suspect]
     Active Substance: CLOFAZIMINE
     Indication: TUBERCULOSIS
     Route: 048
     Dates: start: 20180517, end: 20180701
  4. CLOFAZIMINE [Suspect]
     Active Substance: CLOFAZIMINE
     Route: 048
     Dates: start: 20180717
  5. PYRAZINAMIDE. [Suspect]
     Active Substance: PYRAZINAMIDE
     Indication: TUBERCULOSIS
     Route: 065
     Dates: start: 20180517, end: 20180531
  6. PYRAZINAMIDE. [Suspect]
     Active Substance: PYRAZINAMIDE
     Route: 065
     Dates: start: 20180621, end: 20181121
  7. PARA-AMINOSALICYLIC ACID [Suspect]
     Active Substance: AMINOSALICYLIC ACID
     Indication: TUBERCULOSIS
     Route: 065
     Dates: start: 20180317
  8. PYRIDOXINE [Concomitant]
     Active Substance: PYRIDOXINE
     Route: 065
     Dates: start: 20180517
  9. AMOXICILLIN/CLAVULANIC ACID [Suspect]
     Active Substance: AMOXICILLIN\CLAVULANIC ACID
     Route: 048
     Dates: start: 20181121, end: 20190304
  10. BEDAQUILINE [Suspect]
     Active Substance: BEDAQUILINE
     Indication: TUBERCULOSIS
     Dosage: FOR 2 WEEKS
     Route: 048
     Dates: start: 20180517, end: 2018
  11. BEDAQUILINE [Suspect]
     Active Substance: BEDAQUILINE
     Route: 048
     Dates: start: 20180531
  12. IMIPENEM AND CILASTATIN [Suspect]
     Active Substance: CILASTATIN SODIUM\IMIPENEM
     Indication: TUBERCULOSIS
     Route: 042
     Dates: start: 20181121, end: 20190304
  13. AMOXICILLIN/CLAVULANIC ACID [Suspect]
     Active Substance: AMOXICILLIN\CLAVULANIC ACID
     Indication: TUBERCULOSIS
     Route: 048
     Dates: start: 20180517, end: 20181106
  14. ETHIONAMIDE [Suspect]
     Active Substance: ETHIONAMIDE
     Indication: TUBERCULOSIS
     Route: 065
     Dates: start: 20180517, end: 20181121
  15. LEVOFLOXACIN. [Suspect]
     Active Substance: LEVOFLOXACIN
     Route: 065
     Dates: start: 20180621, end: 20180717
  16. LINEZOLID. [Suspect]
     Active Substance: LINEZOLID
     Route: 048
     Dates: start: 20190305, end: 20190917
  17. AMOXICILLIN. [Suspect]
     Active Substance: AMOXICILLIN
     Indication: TUBERCULOSIS
     Route: 048
     Dates: start: 20180517, end: 2018
  18. LINEZOLID. [Suspect]
     Active Substance: LINEZOLID
     Route: 048
     Dates: start: 20181106, end: 20181224
  19. LEVOFLOXACIN. [Suspect]
     Active Substance: LEVOFLOXACIN
     Indication: TUBERCULOSIS
     Route: 065
     Dates: start: 20180517, end: 20180531
  20. LEVOFLOXACIN. [Suspect]
     Active Substance: LEVOFLOXACIN
     Route: 065
     Dates: start: 20181010, end: 20181121
  21. METHYLCOBALAMINE [Concomitant]
     Active Substance: METHYLCOBALAMIN
     Indication: HYPOAESTHESIA
     Dosage: 1 TABLET TWICE A DAY
     Dates: start: 20190917

REACTIONS (8)
  - Electrocardiogram QT prolonged [Recovered/Resolved]
  - Intentional product use issue [Unknown]
  - Hypoalbuminaemia [Unknown]
  - Aspartate aminotransferase increased [Unknown]
  - Deafness unilateral [Recovering/Resolving]
  - Off label use [Unknown]
  - Neuropathy peripheral [Not Recovered/Not Resolved]
  - Deafness neurosensory [Unknown]

NARRATIVE: CASE EVENT DATE: 20181019
